FAERS Safety Report 14284268 (Version 1)
Quarter: 2017Q4

REPORT INFORMATION
  Report Type: Spontaneous
  Country: US (occurrence: US)
  Receive Date: 20171214
  Receipt Date: 20171214
  Transmission Date: 20180321
  Serious: Yes (Other)
  Sender: FDA-Public Use
  Company Number: US-APOTEX-2017AP022312

PATIENT
  Age: 16 Year
  Sex: Female

DRUGS (2)
  1. ACYCLOVIR. [Suspect]
     Active Substance: ACYCLOVIR
     Indication: OPHTHALMIC HERPES SIMPLEX
     Dosage: 400 MG, 5 TIMES DAILY
     Route: 048
  2. TOBRAMYCIN. [Suspect]
     Active Substance: TOBRAMYCIN
     Indication: OPHTHALMIC HERPES SIMPLEX
     Dosage: UNK
     Route: 050

REACTIONS (3)
  - Drug effect incomplete [Unknown]
  - Ophthalmic herpes simplex [Recovered/Resolved]
  - Disease progression [Recovered/Resolved]
